FAERS Safety Report 8925827 (Version 1)
Quarter: 2012Q4

REPORT INFORMATION
  Report Type: 
  Country: NZ (occurrence: NZ)
  Receive Date: 20121126
  Receipt Date: 20121126
  Transmission Date: 20130627
  Serious: Yes (Hospitalization)
  Sender: FDA-Public Use
  Company Number: PHHY2012NZ107029

PATIENT
  Sex: Female

DRUGS (1)
  1. CLOZARIL [Suspect]
     Dates: start: 20121120

REACTIONS (2)
  - Psychotic disorder [Unknown]
  - Hypophagia [Unknown]
